FAERS Safety Report 9448510 (Version 3)
Quarter: 2013Q3

REPORT INFORMATION
  Report Type: Spontaneous
  Country: FR (occurrence: FR)
  Receive Date: 20130808
  Receipt Date: 20130902
  Transmission Date: 20140515
  Serious: Yes (Other)
  Sender: FDA-Public Use
  Company Number: FR-ROCHE-1259523

PATIENT
  Age: 42 Year
  Sex: Female

DRUGS (3)
  1. ROACTEMRA [Suspect]
     Indication: JUVENILE IDIOPATHIC ARTHRITIS
     Route: 042
     Dates: start: 20130605, end: 201308
  2. SOLU-MEDROL [Concomitant]
     Indication: PREMEDICATION
     Route: 048
  3. POLARAMINE [Concomitant]
     Indication: PREMEDICATION

REACTIONS (3)
  - Rash [Recovered/Resolved]
  - Paraesthesia oral [Recovered/Resolved]
  - Malaise [Recovered/Resolved]
